FAERS Safety Report 6510554-7 (Version None)
Quarter: 2009Q4

REPORT INFORMATION
  Report Type: 
  Country: None (occurrence: None)
  Receive Date: 20091222
  Receipt Date: 20091027
  Transmission Date: 20100525
  Serious: No
  Sender: FDA-Public Use
  Company Number: US-ASTRAZENECA-2009SE22808

PATIENT
  Age: 58 Year
  Sex: Female
  Weight: 71.7 kg

DRUGS (11)
  1. CRESTOR [Suspect]
     Indication: BLOOD CHOLESTEROL INCREASED
     Route: 048
     Dates: start: 20070101, end: 20070101
  2. CYCLOBENZAPRINE [Concomitant]
  3. AMITRIPTYLINE HCL [Concomitant]
  4. DIAZEPAM [Concomitant]
  5. GABAPENTIN [Concomitant]
  6. TRAMADOL HCL [Concomitant]
  7. TYELONOL [Concomitant]
  8. DICLOFENAC POTASSIUM [Concomitant]
  9. DYETTA [Concomitant]
  10. CYMBALTA [Concomitant]
  11. MYCARDIS [Concomitant]

REACTIONS (2)
  - FIBROMYALGIA [None]
  - MYALGIA [None]
